FAERS Safety Report 9465514 (Version 1)
Quarter: 2013Q3

REPORT INFORMATION
  Report Type: Spontaneous
  Country: US (occurrence: US)
  Receive Date: 20130820
  Receipt Date: 20130820
  Transmission Date: 20140515
  Serious: Yes (Death)
  Sender: FDA-Public Use
  Company Number: US-BRISTOL-MYERS SQUIBB COMPANY-19200070

PATIENT
  Age: 66 Year
  Sex: Male

DRUGS (13)
  1. BYETTA [Suspect]
  2. VERSED [Concomitant]
  3. DEMEROL [Concomitant]
  4. VALIUM [Concomitant]
     Dosage: 15 MG
  5. TERAZOSIN [Concomitant]
  6. METOPROLOL [Concomitant]
  7. NEXIUM [Concomitant]
  8. SIMVASTATIN [Concomitant]
  9. ASPIRIN [Concomitant]
  10. GABAPENTIN [Concomitant]
  11. LEVEMIR [Concomitant]
  12. NOVOLOG [Concomitant]
  13. OXYCODONE [Concomitant]

REACTIONS (1)
  - Pancreatic carcinoma [Fatal]
